FAERS Safety Report 6762898-1 (Version None)
Quarter: 2010Q2

REPORT INFORMATION
  Report Type: 
  Country: None (occurrence: None)
  Receive Date: 20100608
  Receipt Date: 20100608
  Transmission Date: 20101027
  Serious: Yes (Hospitalization)
  Sender: FDA-Public Use
  Company Number: None

PATIENT
  Age: 29 Year
  Sex: Female
  Weight: 59 kg

DRUGS (1)
  1. IMIPENEM AND CILASTATIN [Suspect]
     Dosage: 250MG EVERY 12 HOURS IV
     Route: 042
     Dates: start: 20100525, end: 20100603

REACTIONS (1)
  - UNEVALUABLE EVENT [None]
